FAERS Safety Report 12411467 (Version 1)
Quarter: 2016Q2

REPORT INFORMATION
  Report Type: Report from Study
  Country: BR (occurrence: BR)
  Receive Date: 20160527
  Receipt Date: 20160527
  Transmission Date: 20160815
  Serious: Yes (Hospitalization, Other)
  Sender: FDA-Public Use
  Company Number: PHHY2016BR072219

PATIENT
  Age: 83 Year
  Sex: Female
  Weight: 47 kg

DRUGS (1)
  1. ACLASTA [Suspect]
     Active Substance: ZOLEDRONIC ACID
     Indication: OSTEOPOROSIS
     Dosage: 5 MG, Q12MO
     Route: 042
     Dates: start: 2013

REACTIONS (9)
  - Hand fracture [Unknown]
  - Lower limb fracture [Unknown]
  - Cardiac disorder [Unknown]
  - Vein disorder [Unknown]
  - Gait disturbance [Unknown]
  - Swelling [Unknown]
  - Inappropriate schedule of drug administration [Unknown]
  - Dyspnoea [Unknown]
  - Pain [Unknown]

NARRATIVE: CASE EVENT DATE: 201405
